FAERS Safety Report 5491980-4 (Version None)
Quarter: 2007Q4

REPORT INFORMATION
  Report Type: 
  Country: None (occurrence: None)
  Receive Date: 20071022
  Receipt Date: 20071019
  Transmission Date: 20080405
  Serious: Yes (Other)
  Sender: FDA-Public Use
  Company Number: A0688706A

PATIENT
  Age: 58 Year
  Sex: Male

DRUGS (2)
  1. AVODART [Suspect]
     Indication: BENIGN PROSTATIC HYPERPLASIA
     Dosage: 1.5MG TWICE PER DAY
     Route: 048
     Dates: start: 20070822
  2. FLOMAX [Concomitant]

REACTIONS (1)
  - SPERM COUNT ZERO [None]
